FAERS Safety Report 9471520 (Version 2)
Quarter: 2013Q3

REPORT INFORMATION
  Report Type: Spontaneous
  Country: GB (occurrence: None)
  Receive Date: 20130819
  Receipt Date: 20130901
  Transmission Date: 20140515
  Serious: Yes (Life-Threatening, Hospitalization)
  Sender: FDA-Public Use
  Company Number: 2013GB0324

PATIENT
  Sex: Male

DRUGS (4)
  1. ANAKINRA [Suspect]
     Indication: JUVENILE IDIOPATHIC ARTHRITIS
     Dates: end: 20130803
  2. CICLOSPORIN (CICLOSPORIN) (CICLOSPORIN) [Concomitant]
  3. METHOTREXATE (METHOTREXATE) (METHOTREXATE) [Concomitant]
  4. PRED (PREDNISOLONE) (PREDNISOLONE) [Concomitant]

REACTIONS (2)
  - Histiocytosis haematophagic [None]
  - Bacterial sepsis [None]
